FAERS Safety Report 9750024 (Version 1)
Quarter: 2013Q4

REPORT INFORMATION
  Report Type: Spontaneous
  Country: DE (occurrence: DE)
  Receive Date: 20131212
  Receipt Date: 20131212
  Transmission Date: 20140711
  Serious: No
  Sender: FDA-Public Use
  Company Number: DE-GILEAD-DE-CVT-090603

PATIENT
  Sex: Male

DRUGS (3)
  1. RANEXA [Suspect]
     Indication: ANGINA PECTORIS
     Route: 048
     Dates: start: 20090501, end: 20090508
  2. RAMIPRIL                           /00885601/ [Concomitant]
     Route: 048
     Dates: start: 1995
  3. NEBIVOLOL [Concomitant]
     Indication: CORONARY ARTERY DISEASE
     Route: 048
     Dates: start: 1995

REACTIONS (1)
  - Vitreous floaters [Recovered/Resolved]
